FAERS Safety Report 16089903 (Version 5)
Quarter: 2021Q3

REPORT INFORMATION
  Report Type: Spontaneous
  Country: US (occurrence: US)
  Receive Date: 20190319
  Receipt Date: 20210722
  Transmission Date: 20211014
  Serious: No
  Sender: FDA-Public Use
  Company Number: US-SA-2019SA071179

PATIENT
  Age: 57 Year
  Sex: Female

DRUGS (2)
  1. SYNTHROID [Concomitant]
     Active Substance: LEVOTHYROXINE SODIUM
     Indication: HYPOTHYROIDISM
     Dosage: 50 UG, QD
     Route: 048
     Dates: start: 2015
  2. AUBAGIO [Suspect]
     Active Substance: TERIFLUNOMIDE
     Indication: MULTIPLE SCLEROSIS
     Dosage: 14 MG, QD
     Route: 048
     Dates: start: 20190314

REACTIONS (11)
  - Hypoaesthesia [Unknown]
  - Dyspnoea [Unknown]
  - Fatigue [Unknown]
  - Dizziness [Unknown]
  - Alopecia [Unknown]
  - Muscular weakness [Unknown]
  - Arterial occlusive disease [Unknown]
  - Hypertension [Unknown]
  - Blood cholesterol increased [Unknown]
  - Balance disorder [Unknown]
  - Gait inability [Unknown]

NARRATIVE: CASE EVENT DATE: 2020
